FAERS Safety Report 7095594-4 (Version None)
Quarter: 2010Q4

REPORT INFORMATION
  Report Type: 
  Country: None (occurrence: None)
  Receive Date: 20101111
  Receipt Date: 20101105
  Transmission Date: 20110411
  Serious: Yes (Other)
  Sender: FDA-Public Use
  Company Number: JP-PFIZER INC-2010141706

PATIENT

DRUGS (4)
  1. LYRICA [Suspect]
     Indication: POST HERPETIC NEURALGIA
     Dosage: 75 MG, 2X/DAY
     Route: 048
     Dates: start: 20100726, end: 20101018
  2. 8-HOUR BAYER [Concomitant]
     Dosage: UNK
  3. MUCOSTA [Concomitant]
     Dosage: UNK
  4. CYANOCOBALAMIN [Concomitant]
     Dosage: UNK

REACTIONS (1)
  - GAMMA-GLUTAMYLTRANSFERASE INCREASED [None]
